FAERS Safety Report 8862489 (Version 1)
Quarter: 2012Q4

REPORT INFORMATION
  Report Type: 
  Country: US (occurrence: US)
  Receive Date: 20121026
  Receipt Date: 20121026
  Transmission Date: 20130627
  Serious: No
  Sender: FDA-Public Use
  Company Number: US-ALLERGAN-1209761US

PATIENT
  Sex: Female

DRUGS (2)
  1. ALPHAGAN P [Suspect]
     Indication: RAISED IOP
     Dosage: 2 Gtt, UNK
     Route: 047
  2. XALATAN                            /01297301/ [Concomitant]
     Indication: RAISED IOP
     Dosage: UNK
     Dates: start: 2005

REACTIONS (2)
  - Bradycardia [Unknown]
  - Inappropriate schedule of drug administration [Unknown]
